FAERS Safety Report 25337110 (Version 1)
Quarter: 2025Q2

REPORT INFORMATION
  Report Type: Spontaneous
  Country: US (occurrence: US)
  Receive Date: 20250520
  Receipt Date: 20250520
  Transmission Date: 20250716
  Serious: No
  Sender: ROCHE
  Company Number: US-ROCHE-10000288720

PATIENT
  Sex: Male

DRUGS (1)
  1. XOLAIR [Suspect]
     Active Substance: OMALIZUMAB
     Indication: Asthmatic crisis
     Route: 058
     Dates: start: 202003

REACTIONS (1)
  - Illness [Unknown]
